FAERS Safety Report 6341187-3 (Version None)
Quarter: 2009Q3

REPORT INFORMATION
  Report Type: 
  Country: None (occurrence: None)
  Receive Date: 20090904
  Receipt Date: 20090331
  Transmission Date: 20100115
  Serious: No
  Sender: FDA-Public Use
  Company Number: A0777612A

PATIENT
  Age: 43 Year
  Sex: Female

DRUGS (2)
  1. REQUIP [Suspect]
     Indication: RESTLESS LEGS SYNDROME
     Route: 048
     Dates: start: 20050101, end: 20090101
  2. UNKNOWN [Concomitant]

REACTIONS (8)
  - DYSPHONIA [None]
  - ECONOMIC PROBLEM [None]
  - EXERCISE LACK OF [None]
  - IMPULSIVE BEHAVIOUR [None]
  - PATHOLOGICAL GAMBLING [None]
  - RESTLESS LEGS SYNDROME [None]
  - THERAPEUTIC RESPONSE DECREASED [None]
  - WEIGHT INCREASED [None]
